FAERS Safety Report 8168441-7 (Version None)
Quarter: 2012Q1

REPORT INFORMATION
  Report Type: 
  Country: None (occurrence: None)
  Receive Date: 20120227
  Receipt Date: 20120221
  Transmission Date: 20120608
  Serious: Yes (Other)
  Sender: FDA-Public Use
  Company Number: US-NOVOPROD-332845

PATIENT
  Age: 40 Year
  Sex: Female
  Weight: 44.898 kg

DRUGS (9)
  1. LEVOTHYROXINE SODIUM [Concomitant]
     Indication: THYROID DISORDER
     Dosage: 0.075 MG, QD
     Route: 048
     Dates: start: 20110708
  2. METFORMIN HCL [Concomitant]
     Indication: TYPE 2 DIABETES MELLITUS
     Dosage: 1000 MG TWICE DAILY
     Route: 048
  3. ZOLPIDEM TARTRATE [Concomitant]
     Indication: INSOMNIA
     Dosage: 5 MG, HS, PRN
     Route: 048
     Dates: start: 20090910
  4. VICTOZA [Suspect]
     Dosage: UNK
     Route: 058
     Dates: end: 20110810
  5. ONGLYZA [Concomitant]
     Indication: TYPE 2 DIABETES MELLITUS
     Dosage: 5 MG, QD
     Route: 048
     Dates: start: 20110812
  6. HYDROCODONE BITARTRATE AND ACETAMINOPHEN [Concomitant]
     Indication: PAIN
     Dosage: 1 TAB, Q 6HRS, PRN
     Route: 048
     Dates: start: 20110720
  7. LORAZEPAM [Concomitant]
     Indication: ANXIETY
     Dosage: 0.5 MG, Q 8HRS, PRN
     Route: 048
     Dates: start: 20110606
  8. VICTOZA [Suspect]
     Indication: TYPE 2 DIABETES MELLITUS
     Dosage: 1.8 MG, QD
     Route: 058
     Dates: start: 20100727, end: 20110810
  9. PREDNISONE [Concomitant]
     Indication: SYSTEMIC LUPUS ERYTHEMATOSUS
     Dosage: 1 MG, PRN
     Route: 048
     Dates: start: 20110812

REACTIONS (1)
  - PANCREATITIS [None]
